FAERS Safety Report 20879310 (Version 1)
Quarter: 2022Q2

REPORT INFORMATION
  Report Type: Spontaneous
  Country: US (occurrence: US)
  Receive Date: 20220526
  Receipt Date: 20220526
  Transmission Date: 20220720
  Serious: No
  Sender: FDA-Public Use
  Company Number: US-ALKERMES INC.-ALK-2022-002486

PATIENT
  Age: 43 Year
  Sex: Female

DRUGS (3)
  1. ARISTADA [Suspect]
     Active Substance: ARIPIPRAZOLE LAUROXIL
     Indication: Schizophrenia
     Dosage: DOSE NOT ADMINISTERED
     Route: 030
     Dates: start: 20220524
  2. ARISTADA [Suspect]
     Active Substance: ARIPIPRAZOLE LAUROXIL
     Dosage: 882 MILLIGRAM, Q3WK
     Route: 030
     Dates: start: 20220503, end: 20220503
  3. ARISTADA [Suspect]
     Active Substance: ARIPIPRAZOLE LAUROXIL
     Dosage: 882 MILLIGRAM, Q3WK
     Route: 030
     Dates: start: 20190820, end: 20190820

REACTIONS (2)
  - Off label use [Not Recovered/Not Resolved]
  - Product physical consistency issue [Recovered/Resolved]

NARRATIVE: CASE EVENT DATE: 20190820
